FAERS Safety Report 9390352 (Version 1)
Quarter: 2013Q3

REPORT INFORMATION
  Report Type: Report from Study
  Country: FR (occurrence: FR)
  Receive Date: 20130709
  Receipt Date: 20130709
  Transmission Date: 20140515
  Serious: Yes (Hospitalization)
  Sender: FDA-Public Use
  Company Number: FR-ROCHE-1244028

PATIENT
  Age: 54 Year
  Sex: Male
  Weight: 90 kg

DRUGS (20)
  1. TOCILIZUMAB [Suspect]
     Indication: RHEUMATOID ARTHRITIS
     Route: 042
     Dates: start: 20110112, end: 20121003
  2. CORTANCYL [Concomitant]
     Dosage: DAILY
     Route: 065
     Dates: start: 20110112
  3. CORTANCYL [Concomitant]
     Dosage: DAILY
     Route: 065
     Dates: start: 20110414
  4. CORTANCYL [Concomitant]
     Dosage: DAILY
     Route: 065
     Dates: start: 20110720
  5. CORTANCYL [Concomitant]
     Dosage: DAILY
     Route: 065
     Dates: start: 20120125
  6. CORTANCYL [Concomitant]
     Dosage: DAILY
     Route: 065
     Dates: start: 20130109
  7. ARAVA [Concomitant]
     Dosage: DAILY
     Route: 065
  8. CARDENSIEL [Concomitant]
     Dosage: DAILY
     Route: 065
     Dates: start: 20120711
  9. CARDENSIEL [Concomitant]
     Dosage: DAILY
     Route: 065
     Dates: start: 20121003
  10. CRESTOR [Concomitant]
     Dosage: DAILY
     Route: 065
     Dates: start: 20120711
  11. CRESTOR [Concomitant]
     Dosage: DAILY
     Route: 065
     Dates: start: 20121003
  12. TRIATEC (FRANCE) [Concomitant]
     Route: 065
     Dates: start: 20120711
  13. TRIATEC (FRANCE) [Concomitant]
     Route: 065
     Dates: start: 20121003
  14. INEXIUM [Concomitant]
     Dosage: DAILY
     Route: 065
     Dates: start: 20120711
  15. INEXIUM [Concomitant]
     Route: 065
     Dates: start: 20121003
  16. KARDEGIC [Concomitant]
     Dosage: DAILY
     Route: 065
     Dates: start: 20120711
  17. KARDEGIC [Concomitant]
     Dosage: DAILY
     Route: 065
     Dates: start: 20121003
  18. LIPANTHYL [Concomitant]
     Dosage: DAILY
     Route: 065
     Dates: start: 20121003
  19. ABATACEPT [Concomitant]
     Route: 065
     Dates: start: 20090629, end: 20101221
  20. ABATACEPT [Concomitant]
     Route: 065

REACTIONS (4)
  - Hypertriglyceridaemia [Recovered/Resolved with Sequelae]
  - Pulmonary mass [Recovered/Resolved with Sequelae]
  - Diverticulum intestinal [Recovered/Resolved with Sequelae]
  - Large intestine polyp [Unknown]
